FAERS Safety Report 18697189 (Version 1)
Quarter: 2021Q1

REPORT INFORMATION
  Report Type: Spontaneous
  Country: SE (occurrence: SE)
  Receive Date: 20210104
  Receipt Date: 20210104
  Transmission Date: 20210419
  Serious: Yes (Hospitalization, Other)
  Sender: FDA-Public Use
  Company Number: SE-PFIZER INC-2020519472

PATIENT
  Age: 45 Year
  Sex: Male

DRUGS (8)
  1. LYRICA [Suspect]
     Active Substance: PREGABALIN
     Dosage: 100 MILLIGRAM, 1/WEEK
     Route: 065
     Dates: start: 20200306
  2. PALEXIA [Interacting]
     Active Substance: TAPENTADOL HYDROCHLORIDE
     Indication: PAIN
     Dosage: 50 MILLIGRAM, 2/DAY
     Route: 065
     Dates: end: 202004
  3. PREGABALIN. [Suspect]
     Active Substance: PREGABALIN
     Dosage: 200 MILLIGRAM
     Route: 065
     Dates: start: 20200320
  4. VOXRA [Interacting]
     Active Substance: BUPROPION HYDROCHLORIDE
     Dosage: 150 MG, ALTERNATE DAY (150 MILLIGRAM, 1/2 DAYS)
     Route: 065
  5. LYRICA [Suspect]
     Active Substance: PREGABALIN
     Dosage: 200 MILLIGRAM
     Route: 065
  6. VOXRA [Interacting]
     Active Substance: BUPROPION HYDROCHLORIDE
     Indication: DEPRESSION
     Dosage: 150 MILLIGRAM, 1/DAY
     Route: 065
     Dates: end: 202004
  7. PALEXIA [Interacting]
     Active Substance: TAPENTADOL HYDROCHLORIDE
     Dosage: UNK
     Route: 048
  8. VOXRA [Interacting]
     Active Substance: BUPROPION HYDROCHLORIDE
     Dosage: UNK
     Route: 065

REACTIONS (5)
  - Unresponsive to stimuli [Unknown]
  - Syncope [Unknown]
  - Treatment noncompliance [Unknown]
  - Overdose [Unknown]
  - Drug interaction [Unknown]
